FAERS Safety Report 12195370 (Version 3)
Quarter: 2018Q2

REPORT INFORMATION
  Report Type: Spontaneous
  Country: US (occurrence: US)
  Receive Date: 20160321
  Receipt Date: 20180404
  Transmission Date: 20180711
  Serious: Yes (Disabling)
  Sender: FDA-Public Use
  Company Number: US-LUNDBECK-DKLU2010939

PATIENT
  Sex: Male

DRUGS (3)
  1. NORTHERA [Suspect]
     Active Substance: DROXIDOPA
     Indication: MOVEMENT DISORDER
     Route: 048
     Dates: start: 201702
  2. NORTHERA [Suspect]
     Active Substance: DROXIDOPA
     Indication: EXTRAPYRAMIDAL DISORDER
     Dosage: TITRATION COMPLETE
     Route: 048
     Dates: start: 201601
  3. NORTHERA [Suspect]
     Active Substance: DROXIDOPA
     Indication: ORTHOSTATIC HYPOTENSION

REACTIONS (8)
  - Condition aggravated [Unknown]
  - Hypokinesia [Unknown]
  - Fatigue [Unknown]
  - Asthenia [Unknown]
  - Bedridden [Unknown]
  - Gait inability [Unknown]
  - Headache [Unknown]
  - Dizziness [Unknown]
